FAERS Safety Report 9395796 (Version 1)
Quarter: 2013Q3

REPORT INFORMATION
  Report Type: Spontaneous
  Country: GB (occurrence: GB)
  Receive Date: 20130711
  Receipt Date: 20130711
  Transmission Date: 20140515
  Serious: Yes (Hospitalization, Disabling)
  Sender: FDA-Public Use
  Company Number: GB-TEVA-416815ISR

PATIENT
  Age: 81 Year
  Sex: Female

DRUGS (9)
  1. PREDNISOLONE [Suspect]
     Indication: POLYMYALGIA RHEUMATICA
     Dosage: 10 MILLIGRAM DAILY;
     Route: 048
     Dates: start: 201101, end: 201105
  2. PREDNISOLONE [Suspect]
     Dosage: 7.5 MILLIGRAM DAILY;
     Route: 048
     Dates: start: 201105
  3. PREDNISOLONE [Suspect]
     Dosage: 5 MILLIGRAM DAILY;
     Route: 048
     Dates: start: 2011
  4. PREDNISOLONE [Suspect]
     Dosage: 7.5MG/5MG ALTERNATING DAILY FOR 2 WEEKS
     Route: 048
     Dates: start: 2011
  5. HUMULIN [Concomitant]
     Indication: TYPE 2 DIABETES MELLITUS
     Dates: start: 201209
  6. FULTIUM [Concomitant]
     Indication: VITAMIN D DEFICIENCY
     Route: 048
     Dates: start: 201207
  7. DIGOXIN [Concomitant]
     Indication: ATRIAL FIBRILLATION
     Route: 048
     Dates: start: 20110719
  8. MORPHINE SULPHATE [Concomitant]
     Indication: ANALGESIC THERAPY
     Route: 048
     Dates: start: 20130311
  9. FLUOXETINE [Concomitant]
     Indication: DEPRESSION
     Route: 048
     Dates: start: 20040715

REACTIONS (4)
  - Adrenal suppression [Recovering/Resolving]
  - Head injury [Unknown]
  - Dizziness [Recovering/Resolving]
  - Fall [Recovering/Resolving]
